FAERS Safety Report 5092177-2 (Version None)
Quarter: 2006Q3

REPORT INFORMATION
  Report Type: 
  Country: None (occurrence: None)
  Receive Date: 20060829
  Receipt Date: 20060818
  Transmission Date: 20061208
  Serious: Yes (Life-Threatening, Hospitalization, Other)
  Sender: FDA-Public Use
  Company Number: DE-ABBOTT-06P-062-0341613-00

PATIENT
  Age: 5 Year
  Sex: Female

DRUGS (2)
  1. VALPROATE SODIUM [Suspect]
     Indication: CONVULSION
     Dosage: NOT REPORTED
  2. PHENYTOIN [Concomitant]
     Indication: CONVULSION
     Dosage: NOT REPORTED

REACTIONS (3)
  - COMA [None]
  - CONVULSION [None]
  - HEPATOTOXICITY [None]
